FAERS Safety Report 5112840-4 (Version None)
Quarter: 2006Q3

REPORT INFORMATION
  Report Type: 
  Country: None (occurrence: None)
  Receive Date: 20060922
  Receipt Date: 20060912
  Transmission Date: 20061208
  Serious: Yes (Other)
  Sender: FDA-Public Use
  Company Number: DE-PURDUE-DEU_2006_0002455

PATIENT
  Age: 59 Year
  Sex: Female

DRUGS (3)
  1. OXYGESIC [Suspect]
     Indication: BONE DISORDER
     Dosage: 40 MG, BID
     Route: 048
     Dates: start: 20040101
  2. DURAGESIC-100 [Concomitant]
  3. FOSAMAX [Concomitant]

REACTIONS (4)
  - DRUG ABUSER [None]
  - DRUG WITHDRAWAL SYNDROME [None]
  - DYSPNOEA [None]
  - PALPITATIONS [None]
